FAERS Safety Report 5421317-8 (Version None)
Quarter: 2007Q3

REPORT INFORMATION
  Report Type: 
  Country: None (occurrence: None)
  Receive Date: 20070719
  Receipt Date: 20070219
  Transmission Date: 20080115
  Serious: Yes (Hospitalization)
  Sender: FDA-Public Use
  Company Number: OMPQ-PR-0701S-0080

PATIENT
  Age: 74 Year
  Sex: Male
  Weight: 99.7913 kg

DRUGS (1)
  1. OMNIPAQUE 140 [Suspect]
     Indication: PERIPHERAL ISCHAEMIA
     Dosage: 80 ML, SINGLE DOSE, I.A.
     Route: 013
     Dates: start: 20061229, end: 20061229

REACTIONS (1)
  - RENAL FAILURE ACUTE [None]
